FAERS Safety Report 17744780 (Version 7)
Quarter: 2022Q1

REPORT INFORMATION
  Report Type: Spontaneous
  Country: US (occurrence: US)
  Receive Date: 20200505
  Receipt Date: 20220325
  Transmission Date: 20220424
  Serious: No
  Sender: FDA-Public Use
  Company Number: US-PFIZER INC-2020054325

PATIENT
  Age: 67 Year
  Sex: Female

DRUGS (4)
  1. LYRICA [Suspect]
     Active Substance: PREGABALIN
     Indication: Spinal cord injury lumbar
     Dosage: UNK, 1X/DAY (TAKE IT AT NIGHT)
  2. LYRICA [Suspect]
     Active Substance: PREGABALIN
     Indication: Nerve injury
  3. LYRICA [Suspect]
     Active Substance: PREGABALIN
     Indication: Intervertebral disc degeneration
  4. LYRICA [Suspect]
     Active Substance: PREGABALIN
     Indication: Scoliosis

REACTIONS (3)
  - Back disorder [Unknown]
  - Somnolence [Unknown]
  - Therapeutic response unexpected [Unknown]
